FAERS Safety Report 7341443-6 (Version None)
Quarter: 2011Q1

REPORT INFORMATION
  Report Type: 
  Country: None (occurrence: None)
  Receive Date: 20110228
  Receipt Date: 20110218
  Transmission Date: 20110831
  Serious: Yes (Hospitalization)
  Sender: FDA-Public Use
  Company Number: 2011016567

PATIENT
  Age: 67 Year
  Sex: Male
  Weight: 94 kg

DRUGS (27)
  1. METOPROLOL (METOPROLOL) [Concomitant]
  2. DUTASTERIDE (DUTASTERIDE) [Concomitant]
  3. GABAPENTIN [Concomitant]
  4. PROCHLORPERAZINE MALEATE [Concomitant]
  5. ALOXI [Concomitant]
  6. CARBOPLATIN [Concomitant]
  7. DALTEPARIN SODIUM [Suspect]
     Indication: DEEP VEIN THROMBOSIS
     Dosage: 15000 IU, DAILY, SUBCUTANEOUS ; 125000 IU, SUBCUTANEOUS ; 15000 IU, SUBCUTANEOUS
     Route: 058
     Dates: start: 20110202
  8. DALTEPARIN SODIUM [Suspect]
     Indication: DEEP VEIN THROMBOSIS
     Dosage: 15000 IU, DAILY, SUBCUTANEOUS ; 125000 IU, SUBCUTANEOUS ; 15000 IU, SUBCUTANEOUS
     Route: 058
     Dates: start: 20110120
  9. DALTEPARIN SODIUM [Suspect]
     Indication: DEEP VEIN THROMBOSIS
     Dosage: 15000 IU, DAILY, SUBCUTANEOUS ; 125000 IU, SUBCUTANEOUS ; 15000 IU, SUBCUTANEOUS
     Route: 058
     Dates: start: 20101230, end: 20110119
  10. LIDODERM [Concomitant]
  11. POLYETHYLENE GLYCOL [Concomitant]
  12. LORAZEPAM [Concomitant]
  13. TAMSULOSIN HCL [Concomitant]
  14. ONDANSETRON [Concomitant]
  15. MANNITOL [Concomitant]
  16. VENLAFAXINE [Concomitant]
  17. MONTELUKAST SODIUM (MOINTELUKAST SODIUM) [Concomitant]
  18. CICLOPIROX (CICLOPIROX) [Concomitant]
  19. DEXAMETHASONE (DEXAMETHASONE) [Concomitant]
  20. LORATADINE [Concomitant]
  21. EMEND [Concomitant]
  22. GEMCITABINE [Concomitant]
  23. ALPRAZOLAM [Concomitant]
  24. CYCLOBENZAPRINE [Concomitant]
  25. LANSOPRAZOLE [Concomitant]
  26. SENOKOT [Concomitant]
  27. PERCOCET [Concomitant]

REACTIONS (16)
  - STREPTOCOCCUS TEST POSITIVE [None]
  - HYDRONEPHROSIS [None]
  - HIATUS HERNIA [None]
  - BONE MARROW FAILURE [None]
  - INADEQUATE ANALGESIA [None]
  - LYMPHADENOPATHY [None]
  - HYPOPHOSPHATAEMIA [None]
  - DEHYDRATION [None]
  - SEPSIS [None]
  - HYPOKALAEMIA [None]
  - PLEURAL EFFUSION [None]
  - RENAL FAILURE ACUTE [None]
  - LYMPHATIC OBSTRUCTION [None]
  - HYPOMAGNESAEMIA [None]
  - PANCYTOPENIA [None]
  - PAIN [None]
